FAERS Safety Report 11625049 (Version 1)
Quarter: 2015Q4

REPORT INFORMATION
  Report Type: Spontaneous
  Country: GB (occurrence: GB)
  Receive Date: 20151013
  Receipt Date: 20151013
  Transmission Date: 20160304
  Serious: Yes (Other)
  Sender: FDA-Public Use
  Company Number: PHFR2015GB007586

PATIENT
  Sex: Female

DRUGS (2)
  1. CLOZARIL [Suspect]
     Active Substance: CLOZAPINE
     Indication: DELUSIONAL DISORDER, UNSPECIFIED TYPE
  2. CLOZARIL [Suspect]
     Active Substance: CLOZAPINE
     Indication: CHARLES BONNET SYNDROME
     Dosage: UNK
     Route: 048
     Dates: start: 20141216

REACTIONS (1)
  - Non-Hodgkin^s lymphoma [Unknown]
